FAERS Safety Report 5963859-2 (Version None)
Quarter: 2008Q4

REPORT INFORMATION
  Report Type: 
  Country: None (occurrence: None)
  Receive Date: 20081121
  Receipt Date: 20081121
  Transmission Date: 20090506
  Serious: Yes (Other)
  Sender: FDA-Public Use
  Company Number: None

PATIENT
  Sex: Female
  Weight: 74.8435 kg

DRUGS (1)
  1. MINOCYCLINE CAPSULE GENERIC [Suspect]
     Indication: ACNE
     Dosage: 50MG BID PO
     Route: 048
     Dates: start: 20070323, end: 20080303

REACTIONS (5)
  - ANTI-THYROID ANTIBODY POSITIVE [None]
  - ANTINUCLEAR ANTIBODY POSITIVE [None]
  - ARTHRITIS [None]
  - HEPATIC ENZYME INCREASED [None]
  - HYPOAESTHESIA [None]
